FAERS Safety Report 13979115 (Version 1)
Quarter: 2017Q3

REPORT INFORMATION
  Report Type: Spontaneous
  Country: CN (occurrence: CN)
  Receive Date: 20170914
  Receipt Date: 20170914
  Transmission Date: 20171128
  Serious: Yes (Other)
  Sender: FDA-Public Use
  Company Number: CN-009507513-1709CHN003466

PATIENT
  Age: 56 Year
  Sex: Female
  Weight: 50 kg

DRUGS (2)
  1. DIPROSPAN [Suspect]
     Active Substance: BETAMETHASONE DIPROPIONATE\BETAMETHASONE SODIUM PHOSPHATE
     Indication: ANTIALLERGIC THERAPY
     Dosage: 5 MG, QW; ROUTE OF ADMINISTRATION: SPINAL CANAL ADMINISTRATION
     Route: 008
     Dates: start: 20170713, end: 20170720
  2. CYANOCOBALAMIN. [Suspect]
     Active Substance: CYANOCOBALAMIN
     Indication: INTERVERTEBRAL DISC PROTRUSION
     Dosage: 1 MG, QW; ROUTE OF ADMINISTRATION: SPINAL CANAL ADMINISTRATION
     Route: 008
     Dates: start: 20170713, end: 20170720

REACTIONS (3)
  - Asthma [Recovered/Resolved]
  - Cough [Recovered/Resolved]
  - Laryngeal oedema [Recovered/Resolved]

NARRATIVE: CASE EVENT DATE: 20170720
